FAERS Safety Report 10657695 (Version 1)
Quarter: 2014Q4

REPORT INFORMATION
  Report Type: Spontaneous
  Country: US (occurrence: None)
  Receive Date: 20141215
  Receipt Date: 20141215
  Transmission Date: 20150529
  Serious: Yes (Hospitalization)
  Sender: FDA-Public Use
  Company Number: US-H14001-14-01790

PATIENT
  Age: 56 Year
  Sex: Male

DRUGS (5)
  1. PREDNISONE (PREDNISONE) (UNKNOWN) [Suspect]
     Active Substance: PREDNISONE
     Indication: PRODUCT USED FOR UNKNOWN INDICATION
     Route: 048
  2. OMALIZUMAB [Concomitant]
     Active Substance: OMALIZUMAB
  3. CORTICOSTEROIDS [Suspect]
     Active Substance: CORTICOSTEROID NOS
     Indication: ASTHMA
     Dosage: RESPIRATORY (INHALATION)
     Route: 055
  4. XOLAIR (OMALIZUMAB) (UNKNOWN) (OMALIZUMAB) [Concomitant]
  5. MONTELUKAST [Concomitant]
     Active Substance: MONTELUKAST SODIUM

REACTIONS (8)
  - Allergic granulomatous angiitis [None]
  - Dyspnoea [None]
  - Muscular weakness [None]
  - Abdominal pain upper [None]
  - Crepitations [None]
  - Sensory loss [None]
  - Hypoaesthesia [None]
  - Jejunal perforation [None]
